FAERS Safety Report 25946514 (Version 1)
Quarter: 2025Q4

REPORT INFORMATION
  Report Type: Spontaneous
  Country: US (occurrence: US)
  Receive Date: 20251022
  Receipt Date: 20251022
  Transmission Date: 20260117
  Serious: Yes (Hospitalization, Other)
  Sender: SANOFI AVENTIS
  Company Number: US-SA-2025SA303163

PATIENT
  Age: 31 Year
  Sex: Male
  Weight: 52.2 kg

DRUGS (26)
  1. FABRAZYME [Suspect]
     Active Substance: AGALSIDASE BETA
     Dosage: UNK UNK, QOW
     Route: 042
  2. ELIQUIS [Concomitant]
     Active Substance: APIXABAN
     Indication: Splenic infarction
     Dosage: 1 DF, BID
     Route: 048
     Dates: start: 20230214
  3. LYRICA [Concomitant]
     Active Substance: PREGABALIN
     Dosage: 1 DF, BID
     Route: 048
     Dates: start: 20230214
  4. PROGRAF [Concomitant]
     Active Substance: TACROLIMUS
     Dosage: 1 DF, Q12H
     Route: 048
     Dates: start: 20230214
  5. DELTASONE [Concomitant]
     Active Substance: PREDNISONE
     Dosage: 1 DF, QD
     Route: 048
     Dates: start: 20230215
  6. SENOKOT-S [Concomitant]
     Active Substance: DOCUSATE SODIUM\SENNOSIDES
     Dosage: 2 DF, QD
     Route: 048
     Dates: start: 20230214
  7. CRESEMBA [Concomitant]
     Active Substance: ISAVUCONAZONIUM SULFATE
     Dosage: 2 DF, QD
     Route: 048
     Dates: start: 20230217, end: 20230319
  8. LOMOTIL [Concomitant]
     Active Substance: ATROPINE SULFATE\DIPHENOXYLATE HYDROCHLORIDE
     Indication: Diarrhoea
     Dosage: 1 DF, TID
     Route: 048
     Dates: start: 20221231
  9. LEVOTHYROXINE [Concomitant]
     Active Substance: LEVOTHYROXINE
     Dosage: 175 UG, QD
     Route: 048
     Dates: start: 20230102
  10. ZOLOFT [Concomitant]
     Active Substance: SERTRALINE HYDROCHLORIDE
     Dosage: 25 MG, QD
     Route: 048
     Dates: start: 20221107
  11. SEROQUEL [Concomitant]
     Active Substance: QUETIAPINE FUMARATE
     Dosage: 50 MG, BID
     Route: 048
     Dates: start: 20230102
  12. TESSALON [Concomitant]
     Active Substance: BENZONATATE
     Dosage: 1 DF, TID
     Route: 048
     Dates: start: 20230117
  13. PRILOSEC [Concomitant]
     Active Substance: OMEPRAZOLE MAGNESIUM
     Dosage: 20 MG, QD
     Route: 048
  14. ROXICODONE [Concomitant]
     Active Substance: OXYCODONE HYDROCHLORIDE
     Indication: Pain
     Dosage: 1 DF, Q6H
     Route: 048
     Dates: start: 20230214, end: 20230221
  15. TYLENOL [Concomitant]
     Active Substance: ACETAMINOPHEN
     Dosage: 1 DF, TID
     Route: 048
     Dates: start: 20230214, end: 20230228
  16. NEURONTIN [Concomitant]
     Active Substance: GABAPENTIN
     Dosage: 1 DF, TID
     Route: 048
     Dates: start: 20230214, end: 20230228
  17. LASIX [Concomitant]
     Active Substance: FUROSEMIDE
     Dosage: 1 DF, QD
     Route: 048
     Dates: start: 20230214, end: 20230221
  18. ROBAXIN [Concomitant]
     Active Substance: METHOCARBAMOL
     Dosage: 1 DF, Q6H
     Route: 048
     Dates: start: 20230214, end: 20230228
  19. MYFORTIC [Concomitant]
     Active Substance: MYCOPHENOLATE SODIUM
     Dosage: UNK
  20. TEGRETOL [Concomitant]
     Active Substance: CARBAMAZEPINE
     Dosage: UNK
  21. CELLCEPT [Concomitant]
     Active Substance: MYCOPHENOLATE MOFETIL
     Dosage: UNK
  22. ZOFRAN [Concomitant]
     Active Substance: ONDANSETRON HYDROCHLORIDE
     Dosage: UNK
  23. GLYCOLAX [Concomitant]
     Active Substance: POLYETHYLENE GLYCOL 3350
     Dosage: 17 G, QD
     Route: 048
     Dates: start: 20230214
  24. MIRALAX [Concomitant]
     Active Substance: POLYETHYLENE GLYCOL 3350
     Dosage: 17 G, QD
     Route: 048
     Dates: start: 20230214
  25. PRINIVIL [Concomitant]
     Active Substance: LISINOPRIL
     Dosage: UNK
  26. ZESTRIL [Concomitant]
     Active Substance: LISINOPRIL
     Dosage: UNK

REACTIONS (20)
  - Splenic infarction [Unknown]
  - Intracardiac mass [Unknown]
  - Aspergilloma [Unknown]
  - Pyrexia [Unknown]
  - Pneumonia bacterial [Unknown]
  - Pericardial effusion [Unknown]
  - Hypothermia [Unknown]
  - Acute respiratory failure [Unknown]
  - Aortic valve incompetence [Unknown]
  - Thrombocytopenia [Unknown]
  - Night sweats [Unknown]
  - Influenza [Unknown]
  - Abdominal tenderness [Unknown]
  - Fibrin D dimer increased [Unknown]
  - Pleural effusion [Unknown]
  - Weight decreased [Unknown]
  - Thoracic operation [Unknown]
  - Abdominal pain [Unknown]
  - Pain [Unknown]
  - Oedema peripheral [Unknown]

NARRATIVE: CASE EVENT DATE: 20230101
